FAERS Safety Report 5426045-0 (Version None)
Quarter: 2007Q3

REPORT INFORMATION
  Report Type: 
  Country: None (occurrence: None)
  Receive Date: 20070824
  Receipt Date: 20070824
  Transmission Date: 20080115
  Serious: Yes (Other)
  Sender: FDA-Public Use
  Company Number: None

PATIENT
  Sex: Female
  Weight: 79.3795 kg

DRUGS (1)
  1. VANCOMYCIN [Suspect]
     Indication: BODY TEMPERATURE INCREASED
     Dosage: 1GM 1 DOSE IV
     Route: 042
     Dates: start: 20070812

REACTIONS (2)
  - PRURITUS GENERALISED [None]
  - RASH [None]
